FAERS Safety Report 18604052 (Version 2)
Quarter: 2021Q1

REPORT INFORMATION
  Report Type: Spontaneous
  Country: ZA (occurrence: ZA)
  Receive Date: 20201211
  Receipt Date: 20210101
  Transmission Date: 20210419
  Serious: No
  Sender: FDA-Public Use
  Company Number: ZA-LUPIN PHARMACEUTICALS INC.-2020-10050

PATIENT
  Sex: Female

DRUGS (3)
  1. SULFAMETHOXAZOLE AND TRIMETHOPRIM [Suspect]
     Active Substance: SULFAMETHOXAZOLE\TRIMETHOPRIM
     Indication: PROPHYLAXIS
     Dosage: UNK (TRIMETHROPRIM 160MG? SULFAMETHOXAZOLE 800MG (160/800 MG))
     Route: 065
  2. RIFAMPIN. [Suspect]
     Active Substance: RIFAMPIN
     Indication: PROPHYLAXIS
     Dosage: 600 MILLIGRAM, QD
     Route: 048
  3. DOXYCYCLINE. [Suspect]
     Active Substance: DOXYCYCLINE
     Indication: PROPHYLAXIS
     Dosage: 100 MILLIGRAM
     Route: 065

REACTIONS (1)
  - Maternal exposure during pregnancy [Unknown]
